FAERS Safety Report 7676196-5 (Version None)
Quarter: 2011Q3

REPORT INFORMATION
  Report Type: 
  Country: None (occurrence: None)
  Receive Date: 20110811
  Receipt Date: 20110801
  Transmission Date: 20111222
  Serious: Yes (Other)
  Sender: FDA-Public Use
  Company Number: US-CELGENEUS-163-20785-11070935

PATIENT
  Sex: Male

DRUGS (8)
  1. CALCIUM CARBONATE [Concomitant]
     Dosage: 600-200MG
     Route: 048
  2. MULTI-VITAMINS [Concomitant]
     Dosage: 1 TABLET
     Route: 048
  3. THALOMID [Suspect]
     Indication: MULTIPLE MYELOMA
     Dosage: 50 MILLIGRAM
     Route: 048
     Dates: start: 20091203, end: 20110630
  4. BETAGAN [Concomitant]
     Dosage: .5 PERCENT
     Route: 065
  5. MIACALCIN [Concomitant]
     Dosage: 200 IU (INTERNATIONAL UNIT)
     Route: 045
  6. ASCORBIC ACID [Concomitant]
     Dosage: 500 MILLIGRAM
     Route: 048
  7. BEE POLLEN [Concomitant]
     Dosage: 1 CAPSULE
     Route: 048
  8. VITAMIN B-12 [Concomitant]
     Dosage: 2000 MILLIGRAM
     Route: 060

REACTIONS (2)
  - RIB FRACTURE [None]
  - FALL [None]
